FAERS Safety Report 5376631-1 (Version None)
Quarter: 2007Q2

REPORT INFORMATION
  Report Type: 
  Country: None (occurrence: None)
  Receive Date: 20070629
  Receipt Date: 20070613
  Transmission Date: 20071010
  Serious: Yes (Hospitalization)
  Sender: FDA-Public Use
  Company Number: 8024998

PATIENT
  Age: 75 Year
  Sex: Female

DRUGS (2)
  1. KEPPRA [Suspect]
     Indication: EPILEPSY
     Dosage: 250 MG 3/D PO
     Route: 048
     Dates: start: 20070401, end: 20070601
  2. DEPAKENE [Concomitant]

REACTIONS (10)
  - ANOREXIA [None]
  - APHASIA [None]
  - BLOOD AMYLASE INCREASED [None]
  - BLOOD CREATININE INCREASED [None]
  - DYSKINESIA [None]
  - EPILEPSY [None]
  - LEUKOCYTOSIS [None]
  - LIPASE INCREASED [None]
  - RENAL FAILURE [None]
  - SOMNOLENCE [None]
